FAERS Safety Report 13799499 (Version 1)
Quarter: 2017Q3

REPORT INFORMATION
  Report Type: Spontaneous
  Country: US (occurrence: US)
  Receive Date: 20170727
  Receipt Date: 20170727
  Transmission Date: 20171127
  Serious: No
  Sender: FDA-Public Use
  Company Number: US-JNJFOC-20170428813

PATIENT
  Age: 63 Year
  Sex: Female
  Weight: 77.11 kg

DRUGS (3)
  1. NIZORAL [Concomitant]
     Active Substance: KETOCONAZOLE
     Indication: PRURITUS
     Route: 061
  2. WOMENS ROGAINE UNSCENTED [Suspect]
     Active Substance: MINOXIDIL
     Route: 061
  3. WOMENS ROGAINE UNSCENTED [Suspect]
     Active Substance: MINOXIDIL
     Indication: ALOPECIA
     Dosage: ABOUT HALF A CAPFUL
     Route: 061
     Dates: start: 20170419

REACTIONS (4)
  - Product use in unapproved indication [Unknown]
  - Product formulation issue [Unknown]
  - Contraindicated product administered [Unknown]
  - Off label use [Unknown]

NARRATIVE: CASE EVENT DATE: 20170419
